FAERS Safety Report 7380737-5 (Version None)
Quarter: 2011Q1

REPORT INFORMATION
  Report Type: 
  Country: None (occurrence: None)
  Receive Date: 20110329
  Receipt Date: 20081017
  Transmission Date: 20110831
  Serious: Yes (Other)
  Sender: FDA-Public Use
  Company Number: A0753424A

PATIENT
  Age: 45 Year
  Sex: Female
  Weight: 68.2 kg

DRUGS (4)
  1. LOTREL [Concomitant]
  2. AVANDIA [Suspect]
     Route: 048
  3. AMARYL [Concomitant]
  4. LOTENSIN [Concomitant]

REACTIONS (4)
  - ARTERIOSCLEROSIS CORONARY ARTERY [None]
  - MYOCARDIAL ISCHAEMIA [None]
  - CORONARY ARTERY OCCLUSION [None]
  - CARDIAC DISORDER [None]
